FAERS Safety Report 17833248 (Version 2)
Quarter: 2020Q2

REPORT INFORMATION
  Report Type: Other
  Country: AT (occurrence: AT)
  Receive Date: 20200528
  Receipt Date: 20200601
  Transmission Date: 20200714
  Serious: Yes (Hospitalization)
  Sender: FDA-Public Use
  Company Number: AT-CELLTRION INC.-2019AT020424

PATIENT

DRUGS (70)
  1. TRASTUZUMAB EMTANSINE [Suspect]
     Active Substance: ADO-TRASTUZUMAB EMTANSINE
     Indication: HER2 POSITIVE BREAST CANCER
     Dosage: 3.6 MG/M2, EVERY 3 WEEKS  (RECEIVED ON 24/APR/2018,  MOST RECENT DOSE PRIOR TO THE EVENT: 15/MAY/201
     Route: 042
     Dates: start: 20171212
  2. CAPECITABINE. [Suspect]
     Active Substance: CAPECITABINE
     Dosage: 3500 MG (RECEIVED DOSE ON 10/SEP/2018, MOST RECENT DOSE PRIOR TO THE EVENT: 20190527)
     Route: 048
     Dates: start: 20180904
  3. DEXAMETHASON [DEXAMETHASONE] [Concomitant]
     Active Substance: DEXAMETHASONE
     Indication: PRODUCT USED FOR UNKNOWN INDICATION
     Dosage: UNK
     Route: 065
     Dates: start: 20170829, end: 20180813
  4. FORTECORTIN [DEXAMETHASONE] [Concomitant]
     Active Substance: DEXAMETHASONE
     Dosage: UNK
     Route: 065
     Dates: start: 20180127, end: 20180313
  5. FORTECORTIN [DEXAMETHASONE] [Concomitant]
     Active Substance: DEXAMETHASONE
     Dosage: ONGOING = CHECKED
     Dates: start: 20190215, end: 20190215
  6. FORTECORTIN [DEXAMETHASONE] [Concomitant]
     Active Substance: DEXAMETHASONE
     Dosage: ONGOING = CHECKED
     Dates: start: 20190215, end: 20190907
  7. TRITTICO [Concomitant]
     Active Substance: TRAZODONE HYDROCHLORIDE
     Dosage: UNK
     Route: 065
  8. FENISTIL [Concomitant]
     Active Substance: DIMETHINDENE
     Dosage: UNK
     Route: 065
     Dates: start: 20170327, end: 20180313
  9. TEMESTA [LORAZEPAM] [Concomitant]
     Active Substance: LORAZEPAM
     Indication: PRODUCT USED FOR UNKNOWN INDICATION
     Dosage: UNK
     Route: 065
     Dates: start: 20190215
  10. PARACODIN [DIHYDROCODEINE] [Concomitant]
     Dosage: UNK
     Route: 065
     Dates: start: 20180115
  11. VENLAFAB [Concomitant]
     Active Substance: VENLAFAXINE HYDROCHLORIDE
     Indication: PRODUCT USED FOR UNKNOWN INDICATION
     Dosage: UNK
     Route: 065
     Dates: start: 20190315, end: 20190907
  12. KYTRIL [Concomitant]
     Active Substance: GRANISETRON HYDROCHLORIDE
     Indication: PRODUCT USED FOR UNKNOWN INDICATION
     Dosage: UNK
     Route: 065
     Dates: start: 20171212, end: 20180813
  13. CONCOR COR [Concomitant]
     Active Substance: BISOPROLOL FUMARATE
     Indication: PRODUCT USED FOR UNKNOWN INDICATION
     Dosage: ONGOING = CHECKED
     Route: 065
     Dates: end: 20190907
  14. CONCOR COR [Concomitant]
     Active Substance: BISOPROLOL FUMARATE
     Dosage: ONGOING = CHECKED
     Route: 065
  15. EMEND [Concomitant]
     Active Substance: APREPITANT
     Indication: PRODUCT USED FOR UNKNOWN INDICATION
     Dosage: UNK
     Route: 065
     Dates: start: 20180127, end: 20180815
  16. MIRTAZAPIN [Concomitant]
     Active Substance: MIRTAZAPINE
     Indication: PRODUCT USED FOR UNKNOWN INDICATION
     Dosage: ONGOING = CHECKED
     Route: 065
     Dates: start: 20190315, end: 20190907
  17. NAVELBINE [Suspect]
     Active Substance: VINORELBINE TARTRATE
     Indication: HER2 POSITIVE BREAST CANCER
     Dosage: 50 MG, FREQUENCY: OTHER, RECEIVED DOSE ON 30/MAY/2017, MOST RECENT DOSE PRIOR TO THE EVENT: 27/JUN/2
     Route: 048
     Dates: start: 20170306
  18. FORTECORTIN [DEXAMETHASONE] [Concomitant]
     Active Substance: DEXAMETHASONE
     Dosage: UNK
     Route: 065
     Dates: start: 20170829, end: 20180813
  19. TRITTICO [Concomitant]
     Active Substance: TRAZODONE HYDROCHLORIDE
     Dosage: UNK
     Route: 065
  20. NOVALGIN (METAMIZOLE SODIUM) [Concomitant]
     Active Substance: METAMIZOLE SODIUM
     Indication: BACK PAIN
     Dosage: ONGOING = CHECKED
     Route: 065
     Dates: start: 20170327, end: 20191003
  21. BUPRENORPHINE. [Concomitant]
     Active Substance: BUPRENORPHINE
     Dosage: UNK
  22. TRASTUZUMAB (UNKNOWN) [Suspect]
     Active Substance: TRASTUZUMAB
     Indication: HER2 POSITIVE BREAST CANCER
     Dosage: 480 MG
     Route: 042
     Dates: start: 20170306
  23. HYDAL [Concomitant]
     Active Substance: HYDROMORPHONE HYDROCHLORIDE
     Dosage: UNK
     Route: 065
     Dates: start: 20180403, end: 20180628
  24. TEMESTA [LORAZEPAM] [Concomitant]
     Active Substance: LORAZEPAM
     Dosage: UNK
     Route: 065
     Dates: start: 20190226
  25. PARACODIN [DIHYDROCODEINE] [Concomitant]
     Dosage: UNK
     Dates: start: 20190510
  26. LOVENOX [Concomitant]
     Active Substance: ENOXAPARIN SODIUM
     Indication: PRODUCT USED FOR UNKNOWN INDICATION
     Dosage: UNK
     Route: 065
     Dates: start: 20180126, end: 20180208
  27. NOVALGIN (METAMIZOLE SODIUM) [Concomitant]
     Active Substance: METAMIZOLE SODIUM
     Dosage: UNK
     Route: 065
     Dates: start: 20190509, end: 20190509
  28. FORTECORTIN [DEXAMETHASONE] [Concomitant]
     Active Substance: DEXAMETHASONE
     Dosage: UNK
     Route: 065
  29. AMOXICILLIN AND CLAVUNATE POTASSIUM [Concomitant]
     Active Substance: AMOXICILLIN\CLAVULANATE POTASSIUM
     Indication: VASCULAR DEVICE INFECTION
     Dosage: UNK
     Route: 065
     Dates: start: 20180215, end: 20180215
  30. LASIX [Concomitant]
     Active Substance: FUROSEMIDE
     Indication: PRODUCT USED FOR UNKNOWN INDICATION
     Dosage: ONGOING = CHECKED
     Route: 065
     Dates: end: 20190907
  31. LOVENOX [Concomitant]
     Active Substance: ENOXAPARIN SODIUM
     Dosage: UNK
     Route: 065
     Dates: start: 20190312, end: 20190315
  32. ZYRTEC (AUSTRIA) [Concomitant]
     Indication: PRURITUS
     Dosage: ONGOING = CHECKED
     Route: 065
     Dates: start: 20170327, end: 20171215
  33. ZOLPIDEM [Concomitant]
     Active Substance: ZOLPIDEM TARTRATE
     Indication: PRODUCT USED FOR UNKNOWN INDICATION
     Dosage: UNK
     Route: 065
     Dates: start: 20190226
  34. TRITTICO [Concomitant]
     Active Substance: TRAZODONE HYDROCHLORIDE
     Indication: PRODUCT USED FOR UNKNOWN INDICATION
     Dosage: UNK
     Route: 065
     Dates: start: 20181215, end: 20190226
  35. NOVALGIN (METAMIZOLE SODIUM) [Concomitant]
     Active Substance: METAMIZOLE SODIUM
     Indication: HEPATIC PAIN
     Dosage: UNK
     Route: 065
     Dates: start: 20171212, end: 20190907
  36. NOVALGIN (METAMIZOLE SODIUM) [Concomitant]
     Active Substance: METAMIZOLE SODIUM
     Indication: RESPIRATORY TRACT INFECTION
     Dosage: ONGOING = CHECKED
     Route: 065
     Dates: start: 20190315, end: 20190907
  37. CONCOR COR [Concomitant]
     Active Substance: BISOPROLOL FUMARATE
     Dosage: ONGOING = CHECKED
     Route: 065
  38. LYRICA [Concomitant]
     Active Substance: PREGABALIN
     Indication: BACK PAIN
     Dosage: UNK
     Route: 065
     Dates: start: 20181227, end: 20190226
  39. PERTUZUMAB. [Suspect]
     Active Substance: PERTUZUMAB
     Indication: HER2 POSITIVE BREAST CANCER
     Dosage: 420 MG, EVERY 3 WEEKS (RECEIVED DOSE ON 21/NOV/2017)
     Route: 042
     Dates: start: 20170306
  40. SUCRALFAT [Concomitant]
     Active Substance: SUCRALFATE
     Dosage: UNK ONGOING = CHECKED
     Route: 065
  41. HYDAL [Concomitant]
     Active Substance: HYDROMORPHONE HYDROCHLORIDE
     Dosage: UNK
     Route: 065
     Dates: start: 20181227, end: 20190907
  42. AUGMENTIN [Concomitant]
     Active Substance: AMOXICILLIN\CLAVULANATE POTASSIUM
     Indication: RESPIRATORY TRACT INFECTION
     Dosage: UNK
     Route: 065
     Dates: start: 20190509, end: 20190516
  43. NOVALGIN (METAMIZOLE SODIUM) [Concomitant]
     Active Substance: METAMIZOLE SODIUM
     Dosage: UNK
     Route: 065
     Dates: start: 20190615, end: 20190615
  44. SOLU-DACORTIN [Concomitant]
     Active Substance: PREDNISOLONE SODIUM SUCCINATE
     Indication: CHILLS
     Dosage: UNK
     Route: 065
     Dates: start: 20170306, end: 20170306
  45. XELODA [Suspect]
     Active Substance: CAPECITABINE
     Indication: HER2 POSITIVE BREAST CANCER
     Dosage: 3500 MG, DAILY, RECEIVED DOSE ON 10/SEP/2018, MOST RECENT DOSE PRIOR TO THE EVENT: 20190527
     Route: 048
     Dates: start: 20180904
  46. CAPECITABINE. [Suspect]
     Active Substance: CAPECITABINE
     Indication: HER2 POSITIVE BREAST CANCER
     Dosage: 3500 MG, QD (RECEIVED DOSE ON 10/SEP/2018, MOST RECENT DOSE PRIOR TO THE EVENT: 20190527)
     Route: 048
     Dates: start: 20180904
  47. SUCRALFAT [Concomitant]
     Active Substance: SUCRALFATE
     Indication: PRODUCT USED FOR UNKNOWN INDICATION
     Dosage: UNK ONGOING = CHECKED
     Route: 065
     Dates: end: 20190907
  48. ULSAL [Concomitant]
     Active Substance: RANITIDINE HYDROCHLORIDE
     Indication: CHILLS
     Dosage: UNK
     Route: 065
     Dates: start: 20170327, end: 20180813
  49. ULSAL [Concomitant]
     Active Substance: RANITIDINE HYDROCHLORIDE
     Dosage: UNK
     Route: 065
     Dates: start: 20170306, end: 20170306
  50. FORTECORTIN [DEXAMETHASONE] [Concomitant]
     Active Substance: DEXAMETHASONE
     Indication: PRODUCT USED FOR UNKNOWN INDICATION
     Dosage: ONGOING = CHECKED
     Route: 065
     Dates: start: 20190215, end: 20190215
  51. TRITTICO [Concomitant]
     Active Substance: TRAZODONE HYDROCHLORIDE
     Dosage: UNK
     Route: 065
  52. PANTOLOC [PANTOPRAZOLE] [Concomitant]
     Active Substance: PANTOPRAZOLE SODIUM
     Indication: PRODUCT USED FOR UNKNOWN INDICATION
     Dosage: ONGOING = CHECKED
     Route: 065
     Dates: start: 20170302
  53. NOVALGIN (METAMIZOLE SODIUM) [Concomitant]
     Active Substance: METAMIZOLE SODIUM
     Dosage: UNK
     Route: 065
     Dates: start: 20190315
  54. BAMBEC [Concomitant]
     Active Substance: BAMBUTEROL HYDROCHLORIDE
  55. DOXYCYCLIN [DOXYCYCLINE] [Concomitant]
     Active Substance: DOXYCYCLINE
     Indication: RESPIRATORY TRACT INFECTION
     Dosage: UNK
     Route: 065
     Dates: start: 20190502, end: 20190509
  56. TRASTUZUMAB (UNKNOWN) [Suspect]
     Active Substance: TRASTUZUMAB
     Dosage: 480 MG, EVERY 3 WEEKS, RECEIVED DOSE ON 21/NOV/2017, MOST RECENT DOSE PRIOR TO THE EVENT: 27/MAY/201
     Route: 042
     Dates: start: 20170306
  57. LAEVOLAC [Concomitant]
     Active Substance: LACTULOSE
     Indication: PRODUCT USED FOR UNKNOWN INDICATION
     Dosage: ONGOING = CHECKED
     Route: 065
     Dates: start: 20171212, end: 20190907
  58. HYDAL [Concomitant]
     Active Substance: HYDROMORPHONE HYDROCHLORIDE
     Indication: BACK PAIN
     Dosage: UNK
     Route: 065
     Dates: start: 20180115
  59. HYDAL [Concomitant]
     Active Substance: HYDROMORPHONE HYDROCHLORIDE
     Dosage: UNK
     Route: 065
     Dates: start: 20180628, end: 20190226
  60. FENISTIL [Concomitant]
     Active Substance: DIMETHINDENE
     Indication: CHILLS
     Dosage: UNK
     Route: 065
     Dates: start: 20170306, end: 20170306
  61. LIXIANA [Concomitant]
     Active Substance: EDOXABAN TOSYLATE
     Indication: PULMONARY EMBOLISM
     Dosage: ONGOING = CHECKED
     Route: 065
     Dates: start: 20190315, end: 20190907
  62. LIXIANA [Concomitant]
     Active Substance: EDOXABAN TOSYLATE
     Dosage: UNK
     Route: 065
  63. PARACODIN [DIHYDROCODEINE] [Concomitant]
     Indication: COUGH
     Dosage: UNK
     Dates: start: 20171212, end: 20180115
  64. MEXALEN [Concomitant]
     Active Substance: ACETAMINOPHEN
     Indication: PRODUCT USED FOR UNKNOWN INDICATION
     Dosage: UNK
     Route: 065
     Dates: start: 20170327, end: 20170327
  65. BUPRENORPHINE. [Concomitant]
     Active Substance: BUPRENORPHINE
     Indication: PRODUCT USED FOR UNKNOWN INDICATION
     Dosage: UNK
     Route: 065
  66. DAFLON [DIOSMIN;HESPERIDIN] [Concomitant]
     Active Substance: DIOSMIN\HESPERIDIN
     Indication: PRODUCT USED FOR UNKNOWN INDICATION
     Dosage: ONGOING = NOT CHECKED
     Route: 065
     Dates: start: 20171212, end: 20190907
  67. ZOLPIDEM [Concomitant]
     Active Substance: ZOLPIDEM TARTRATE
     Dosage: UNK
     Route: 065
     Dates: start: 20190215, end: 20190315
  68. KALIORAL [CITRIC ACID;POTASSIUM BICARBONATE;POTASSIUM CITRATE] [Concomitant]
     Indication: PRODUCT USED FOR UNKNOWN INDICATION
     Dosage: UNK
     Route: 065
  69. PASPERTIN [METOCLOPRAMIDE HYDROCHLORIDE] [Concomitant]
     Active Substance: METOCLOPRAMIDE HYDROCHLORIDE
     Indication: PRODUCT USED FOR UNKNOWN INDICATION
     Dosage: ONGOING = CHECKED
     Route: 065
     Dates: start: 20171212, end: 20190907
  70. AMOXICILLIN. [Concomitant]
     Active Substance: AMOXICILLIN
     Indication: VASCULAR DEVICE INFECTION
     Dosage: UNK
     Route: 065
     Dates: start: 20180215, end: 20180215

REACTIONS (4)
  - Cough [Not Recovered/Not Resolved]
  - Respiratory tract infection [Recovered/Resolved]
  - Pulmonary embolism [Recovered/Resolved]
  - Dyspnoea [Recovered/Resolved]

NARRATIVE: CASE EVENT DATE: 20190312
